FAERS Safety Report 11281611 (Version 1)
Quarter: 2015Q3

REPORT INFORMATION
  Report Type: Spontaneous
  Country: PT (occurrence: PT)
  Receive Date: 20150717
  Receipt Date: 20150717
  Transmission Date: 20151125
  Serious: Yes (Hospitalization)
  Sender: FDA-Public Use
  Company Number: PT-ABBVIE-15P-130-1429397-00

PATIENT
  Age: 30 Year
  Sex: Female

DRUGS (2)
  1. KLACID [Suspect]
     Active Substance: CLARITHROMYCIN
     Indication: ALLERGY TO ARTHROPOD BITE
     Route: 065
     Dates: start: 20090702, end: 20090703
  2. ROSILAN [Suspect]
     Active Substance: DEFLAZACORT
     Indication: ALLERGY TO ARTHROPOD BITE
     Route: 065
     Dates: start: 20090702, end: 20090703

REACTIONS (2)
  - Acute generalised exanthematous pustulosis [Recovered/Resolved]
  - Face oedema [Recovered/Resolved]

NARRATIVE: CASE EVENT DATE: 20090702
